FAERS Safety Report 21377610 (Version 1)
Quarter: 2022Q3

REPORT INFORMATION
  Report Type: Spontaneous
  Country: LV (occurrence: LV)
  Receive Date: 20220926
  Receipt Date: 20220926
  Transmission Date: 20221026
  Serious: Yes (Death)
  Sender: FDA-Public Use
  Company Number: None

PATIENT
  Age: 42 Year
  Sex: Male
  Weight: 94 kg

DRUGS (1)
  1. ULTRAVIST [Suspect]
     Active Substance: IOPROMIDE
     Indication: Aortogram
     Dosage: UNK, ONCE
     Route: 042
     Dates: start: 20220810, end: 20220810

REACTIONS (3)
  - Anaphylactic reaction [Fatal]
  - Bradycardia [Fatal]
  - Angioedema [Fatal]

NARRATIVE: CASE EVENT DATE: 20220810
